FAERS Safety Report 7583391-2 (Version None)
Quarter: 2011Q2

REPORT INFORMATION
  Report Type: 
  Country: None (occurrence: None)
  Receive Date: 20110630
  Receipt Date: 20110615
  Transmission Date: 20111010
  Serious: Yes (Death, Other)
  Sender: FDA-Public Use
  Company Number: US-BAYER-201041576NA

PATIENT
  Age: 35 Year
  Sex: Female

DRUGS (3)
  1. ORTHO TRI-CYCLEN [Concomitant]
     Dosage: UNK
  2. LIDOCAINE [Concomitant]
     Indication: VENTRICULAR TACHYCARDIA
  3. DROSPIRENONE AND ETHINYL ESTRADIOL [Suspect]
     Dosage: UNK UNK, UNK
     Route: 065
     Dates: start: 20020101, end: 20020101

REACTIONS (4)
  - COLITIS ISCHAEMIC [None]
  - CEREBROVASCULAR ACCIDENT [None]
  - CARDIO-RESPIRATORY ARREST [None]
  - NECROTISING COLITIS [None]
